FAERS Safety Report 9240460 (Version 1)
Quarter: 2013Q1

REPORT INFORMATION
  Report Type: Spontaneous
  Country: US (occurrence: None)
  Receive Date: 20121120
  Receipt Date: 20121120
  Transmission Date: 20140127
  Serious: Yes (Other)
  Sender: FDA-Public Use
  Company Number: CPI 3176

PATIENT
  Sex: Female

DRUGS (1)
  1. KRISTALOSE [Suspect]
     Indication: CONSTIPATION
     Dosage: 20G ,3 TIMES PER DAY ABOUT 1 MONTH

REACTIONS (1)
  - Constipation [None]
